FAERS Safety Report 8039724-6 (Version None)
Quarter: 2012Q1

REPORT INFORMATION
  Report Type: 
  Country: None (occurrence: None)
  Receive Date: 20120111
  Receipt Date: 20111220
  Transmission Date: 20120608
  Serious: No
  Sender: FDA-Public Use
  Company Number: US-AMGEN-USASP2011068264

PATIENT
  Sex: Female

DRUGS (2)
  1. ENBREL [Suspect]
     Indication: RHEUMATOID ARTHRITIS
     Dosage: 50 MG, QWK
     Dates: start: 20110125
  2. METHOTREXATE [Concomitant]
     Dosage: 1 MG, QWK
     Dates: start: 20050101

REACTIONS (6)
  - JOINT SWELLING [None]
  - ODYNOPHAGIA [None]
  - OROPHARYNGEAL PLAQUE [None]
  - ORAL PAIN [None]
  - DRUG INEFFECTIVE [None]
  - DRY MOUTH [None]
